FAERS Safety Report 10637634 (Version 1)
Quarter: 2014Q4

REPORT INFORMATION
  Report Type: Spontaneous
  Country: US (occurrence: US)
  Receive Date: 20141208
  Receipt Date: 20141208
  Transmission Date: 20150529
  Serious: Yes (Death, Life-Threatening, Hospitalization)
  Sender: FDA-Public Use
  Company Number: US-BRACCO-011557

PATIENT
  Age: 60 Year
  Sex: Male

DRUGS (1)
  1. MULTIHANCE [Suspect]
     Active Substance: GADOBENATE DIMEGLUMINE
     Indication: NUCLEAR MAGNETIC RESONANCE IMAGING
     Route: 042

REACTIONS (2)
  - Dyspnoea [Fatal]
  - Obstructive airways disorder [Fatal]

NARRATIVE: CASE EVENT DATE: 20141112
